FAERS Safety Report 17684565 (Version 1)
Quarter: 2020Q2

REPORT INFORMATION
  Report Type: Spontaneous
  Country: CN (occurrence: CN)
  Receive Date: 20200420
  Receipt Date: 20200420
  Transmission Date: 20200714
  Serious: Yes (Other)
  Sender: FDA-Public Use
  Company Number: CN-JNJFOC-20200415010

PATIENT
  Sex: Male

DRUGS (1)
  1. INVEGA [Suspect]
     Active Substance: PALIPERIDONE
     Indication: MANIA
     Route: 048
     Dates: start: 2011, end: 2019

REACTIONS (8)
  - Hallucination [Unknown]
  - Libido decreased [Recovered/Resolved]
  - Tremor [Unknown]
  - Thinking abnormal [Recovered/Resolved]
  - Therapy cessation [Unknown]
  - Dizziness [Recovered/Resolved]
  - Asthenia [Recovered/Resolved]
  - Dry mouth [Unknown]

NARRATIVE: CASE EVENT DATE: 2015
